FAERS Safety Report 11810154 (Version 1)
Quarter: 2015Q4

REPORT INFORMATION
  Report Type: Other
  Country: FR (occurrence: FR)
  Receive Date: 20151208
  Receipt Date: 20151208
  Transmission Date: 20160305
  Serious: Yes (Other)
  Sender: FDA-Public Use
  Company Number: FR-LUPIN PHARMACEUTICALS INC.-2015-03907

PATIENT
  Age: 80 Year
  Sex: Male

DRUGS (3)
  1. METHOTREXATE [Interacting]
     Active Substance: METHOTREXATE
     Dosage: 40 MG
     Route: 065
  2. METHOTREXATE [Interacting]
     Active Substance: METHOTREXATE
     Indication: PRODUCT USED FOR UNKNOWN INDICATION
     Dosage: 40 MG/M^2
     Route: 065
  3. OMEPRAZOLE. [Suspect]
     Active Substance: OMEPRAZOLE
     Indication: PRODUCT USED FOR UNKNOWN INDICATION
     Route: 065

REACTIONS (5)
  - Mucosal inflammation [Recovered/Resolved]
  - Pancytopenia [Recovered/Resolved]
  - Drug interaction [Unknown]
  - Skin lesion [Recovered/Resolved]
  - Toxicity to various agents [Recovered/Resolved]
